FAERS Safety Report 7851418-6 (Version None)
Quarter: 2011Q4

REPORT INFORMATION
  Report Type: 
  Country: None (occurrence: None)
  Receive Date: 20111024
  Receipt Date: 20111013
  Transmission Date: 20120403
  Serious: Yes (Other)
  Sender: FDA-Public Use
  Company Number: GB-ACCORD-010996

PATIENT
  Age: 16 Year
  Sex: Male

DRUGS (12)
  1. ETOPOSIDE [Suspect]
     Indication: EWING'S SARCOMA
     Dosage: INTRAVENOUS (NOT OTHERWISE SPECIFIED)
     Route: 042
  2. DOXORUBICIN HCL [Suspect]
     Indication: EWING'S SARCOMA
     Dosage: INTRAVENOUS (NOT OTHERWISE SPECIFIED)
     Route: 042
  3. POTASSIUM [Concomitant]
  4. LOPERAMIDE [Concomitant]
  5. PHOSPHATE-SANDOZ(PHOSPHATE-SANDOZ) [Concomitant]
  6. DACTINOMYCIN [Suspect]
     Indication: EWING'S SARCOMA
     Dosage: INTRAVENOUS (NOT OTHERWISE SPECIFIED)
  7. FENTANYL [Concomitant]
  8. VINCRISTINE [Suspect]
     Indication: EWING'S SARCOMA
     Dosage: INTRAVENOUS (NOT OTHERWISE SPECIFIED)
     Route: 042
  9. IFOSFAMIDE [Suspect]
     Indication: EWING'S SARCOMA
     Dosage: INTRAVENOUS (NOT OTHERWISE SPECIFIED)
  10. BICARBONATE(POTASSIUM BICARBONATE) [Concomitant]
  11. SODIUM BICARBONATE IN PLASTIC CONTAINER [Concomitant]
  12. TOPIRAMATE [Concomitant]

REACTIONS (5)
  - ENTERITIS [None]
  - NEURALGIA [None]
  - TUBULOINTERSTITIAL NEPHRITIS [None]
  - RENAL TUBULAR ACIDOSIS [None]
  - RADIATION INJURY [None]
